FAERS Safety Report 12661524 (Version 13)
Quarter: 2018Q1

REPORT INFORMATION
  Report Type: Spontaneous
  Country: US (occurrence: US)
  Receive Date: 20160817
  Receipt Date: 20180312
  Transmission Date: 20180508
  Serious: Yes (Hospitalization)
  Sender: FDA-Public Use
  Company Number: US-PFIZER INC-2016385883

PATIENT
  Age: 60 Year
  Sex: Female

DRUGS (6)
  1. LYRICA [Suspect]
     Active Substance: PREGABALIN
     Dosage: 100 MG, 4X/DAY
     Route: 048
  2. LYRICA [Suspect]
     Active Substance: PREGABALIN
     Dosage: 100 MG, 6 TIMES A DAY
     Route: 048
     Dates: start: 20161129
  3. LYRICA [Suspect]
     Active Substance: PREGABALIN
     Dosage: 100 MG, 6 TIMES DAILY
     Route: 048
     Dates: start: 20171026
  4. TRAMADOL HCL [Concomitant]
     Active Substance: TRAMADOL HYDROCHLORIDE
     Dosage: 50 MG, UNK
  5. LYRICA [Suspect]
     Active Substance: PREGABALIN
     Indication: NEURALGIA
     Dosage: 100 MG, 5 TIMES A DAY
     Route: 048
     Dates: start: 20161011
  6. LYRICA [Suspect]
     Active Substance: PREGABALIN
     Dosage: 200 MG, 3X/DAY
     Route: 048

REACTIONS (8)
  - Headache [Unknown]
  - Tremor [Unknown]
  - Off label use [Unknown]
  - Intentional underdose [Unknown]
  - Hip fracture [Unknown]
  - Fall [Unknown]
  - Weight increased [Unknown]
  - Drug effect incomplete [Unknown]

NARRATIVE: CASE EVENT DATE: 20161011
